FAERS Safety Report 25935911 (Version 1)
Quarter: 2025Q4

REPORT INFORMATION
  Report Type: Spontaneous
  Country: CN (occurrence: CN)
  Receive Date: 20251017
  Receipt Date: 20251017
  Transmission Date: 20260118
  Serious: Yes (Hospitalization)
  Sender: COHERUS
  Company Number: CN-SHANGHAI JUNSHI BIOSCIENCES CO., LTD.-CN2025016064

PATIENT

DRUGS (6)
  1. TORIPALIMAB [Suspect]
     Active Substance: TORIPALIMAB
     Indication: Nonkeratinising carcinoma of nasopharynx
     Dosage: 240 MG, SINGLE
     Route: 041
     Dates: start: 20250917, end: 20250917
  2. CARBOPLATIN [Suspect]
     Active Substance: CARBOPLATIN
     Indication: Nonkeratinising carcinoma of nasopharynx
     Dosage: 550 MG, SINGLE
     Route: 041
     Dates: start: 20250918, end: 20250918
  3. PACLITAXEL [Suspect]
     Active Substance: PACLITAXEL
     Indication: Nonkeratinising carcinoma of nasopharynx
     Dosage: 300 MG, SINGLE
     Route: 041
     Dates: start: 20250918, end: 20250918
  4. SODIUM CHLORIDE [Concomitant]
     Active Substance: SODIUM CHLORIDE
     Indication: Medication dilution
     Dosage: 100 ML, SINGLE
     Route: 041
     Dates: start: 20250917, end: 20250917
  5. SODIUM CHLORIDE [Concomitant]
     Active Substance: SODIUM CHLORIDE
     Indication: Medication dilution
     Dosage: 400 ML, SINGLE
     Route: 041
     Dates: start: 20250918, end: 20250918
  6. DEXTROSE [Concomitant]
     Active Substance: DEXTROSE MONOHYDRATE
     Indication: Medication dilution
     Dosage: 500 ML, SINGLE
     Route: 041
     Dates: start: 20250918, end: 20250918

REACTIONS (1)
  - Myelosuppression [Recovering/Resolving]

NARRATIVE: CASE EVENT DATE: 20250929
